FAERS Safety Report 7206690-2 (Version None)
Quarter: 2011Q1

REPORT INFORMATION
  Report Type: 
  Country: None (occurrence: None)
  Receive Date: 20110103
  Receipt Date: 20101210
  Transmission Date: 20110831
  Serious: No
  Sender: FDA-Public Use
  Company Number: US-PFIZER INC-2010169065

PATIENT
  Sex: Female
  Weight: 78.458 kg

DRUGS (2)
  1. LIPITOR [Suspect]
     Indication: BLOOD CHOLESTEROL INCREASED
     Dates: start: 20070101, end: 20101001
  2. HYDROCHLOROTHIAZIDE [Concomitant]

REACTIONS (4)
  - LYMPH NODE PAIN [None]
  - ANXIETY [None]
  - MUSCULOSKELETAL PAIN [None]
  - LYMPHADENOPATHY [None]
